FAERS Safety Report 5588351-9 (Version None)
Quarter: 2008Q1

REPORT INFORMATION
  Report Type: 
  Country: None (occurrence: None)
  Receive Date: 20080111
  Receipt Date: 20071001
  Transmission Date: 20080703
  Serious: No
  Sender: FDA-Public Use
  Company Number: A0685352A

PATIENT
  Age: 54 Year
  Sex: Female

DRUGS (10)
  1. TYKERB [Suspect]
     Indication: BREAST CANCER
     Dosage: 1000MG PER DAY
     Route: 048
     Dates: start: 20070927, end: 20070930
  2. IMODIUM [Concomitant]
  3. HERCEPTIN [Concomitant]
  4. ARIMIDEX [Concomitant]
  5. SYNTHROID [Concomitant]
  6. VITAMIN CAP [Concomitant]
  7. VITAMIN B-12 [Concomitant]
  8. FOLIC ACID [Concomitant]
  9. ZOMETA [Concomitant]
  10. EXTRA STRENGTH TYLENOL [Concomitant]

REACTIONS (7)
  - ABDOMINAL DISTENSION [None]
  - ABDOMINAL PAIN [None]
  - ABNORMAL FAECES [None]
  - DIARRHOEA [None]
  - FAECES DISCOLOURED [None]
  - GASTROINTESTINAL DISORDER [None]
  - URINARY TRACT INFECTION [None]
